FAERS Safety Report 12303989 (Version 1)
Quarter: 2016Q2

REPORT INFORMATION
  Report Type: Spontaneous
  Country: US (occurrence: None)
  Receive Date: 20160425
  Receipt Date: 20160425
  Transmission Date: 20160815
  Serious: Yes (Other)
  Sender: FDA-Public Use
  Company Number: None

PATIENT
  Age: 63 Year
  Sex: Female
  Weight: 60.78 kg

DRUGS (6)
  1. TEMAZEPAM. [Concomitant]
     Active Substance: TEMAZEPAM
  2. NATURE-THROID [Concomitant]
     Active Substance: THYROID, PORCINE
  3. VITAMIN D [Concomitant]
     Active Substance: CHOLECALCIFEROL
  4. METRONIDAZOLE 500 MG TEVA [Suspect]
     Active Substance: METRONIDAZOLE
     Indication: DIVERTICULITIS
     Dosage: 2 TABLET(S) TAKEN BY MOUTH
     Route: 048
     Dates: start: 20160411, end: 20160412
  5. FAMOTODINE [Concomitant]
  6. VITAMIN K [Concomitant]
     Active Substance: PHYTONADIONE

REACTIONS (5)
  - Migraine [None]
  - Arrhythmia [None]
  - Paranoia [None]
  - Diverticulitis [None]
  - Heart rate abnormal [None]

NARRATIVE: CASE EVENT DATE: 20160415
